FAERS Safety Report 5582983-X (Version None)
Quarter: 2008Q1

REPORT INFORMATION
  Report Type: 
  Country: None (occurrence: None)
  Receive Date: 20080107
  Receipt Date: 20080102
  Transmission Date: 20080703
  Serious: Yes (Death, Hospitalization, Other)
  Sender: FDA-Public Use
  Company Number: PHEH2007US14812

PATIENT
  Age: 74 Year
  Sex: Male

DRUGS (9)
  1. GLEEVEC [Suspect]
     Indication: ACUTE LYMPHOCYTIC LEUKAEMIA
     Dosage: 400 MG, BID
     Route: 048
     Dates: start: 20070815
  2. GLEEVEC [Suspect]
     Dosage: 400 MG, BID
     Route: 048
     Dates: start: 20070426, end: 20070712
  3. CARTIA /USA/ [Concomitant]
     Dosage: 240 MG, QD
  4. LEXAPRO [Concomitant]
     Dosage: 10 MG, QD
  5. LASIX [Concomitant]
  6. PROTONIX [Concomitant]
  7. PREDNISONE TAB [Concomitant]
     Indication: ACUTE LYMPHOCYTIC LEUKAEMIA
     Dosage: 60 MG, QD
     Route: 048
     Dates: start: 20070426, end: 20070626
  8. VINCRISTINE [Concomitant]
     Indication: ACUTE LYMPHOCYTIC LEUKAEMIA
     Dosage: UNK, QW
     Dates: start: 20070426
  9. GLYBURIDE [Concomitant]
     Indication: DIABETES MELLITUS
     Route: 048

REACTIONS (13)
  - CARDIAC FAILURE CONGESTIVE [None]
  - CARDIOMEGALY [None]
  - FALL [None]
  - JOINT SWELLING [None]
  - MYOPATHY STEROID [None]
  - NARCOTIC INTOXICATION [None]
  - OBSTRUCTIVE AIRWAYS DISORDER [None]
  - PAIN IN EXTREMITY [None]
  - PHYSIOTHERAPY [None]
  - PITTING OEDEMA [None]
  - PLEURAL EFFUSION [None]
  - RESPIRATORY FAILURE [None]
  - TRAUMATIC HAEMATOMA [None]
